FAERS Safety Report 16006919 (Version 1)
Quarter: 2019Q1

REPORT INFORMATION
  Report Type: Spontaneous
  Country: US (occurrence: US)
  Receive Date: 20190226
  Receipt Date: 20190226
  Transmission Date: 20190418
  Serious: Yes (Hospitalization)
  Sender: FDA-Public Use
  Company Number: US-PFIZER INC-2019073043

PATIENT
  Age: 36 Year
  Sex: Female
  Weight: 100.24 kg

DRUGS (1)
  1. VFEND [Suspect]
     Active Substance: VORICONAZOLE
     Indication: GRAFT VERSUS HOST DISEASE
     Dosage: 300 MG, 2X/DAY (SIX TABLETS IN THE MORNING AND 6 TABLETS AT NIGHT)
     Route: 048
     Dates: start: 20180614

REACTIONS (3)
  - Feeling abnormal [Unknown]
  - Acute myeloid leukaemia [Unknown]
  - Product use in unapproved indication [Unknown]

NARRATIVE: CASE EVENT DATE: 2018
